FAERS Safety Report 7366182-7 (Version None)
Quarter: 2011Q1

REPORT INFORMATION
  Report Type: 
  Country: None (occurrence: None)
  Receive Date: 20110317
  Receipt Date: 20110317
  Transmission Date: 20110831
  Serious: Yes (Hospitalization, Other)
  Sender: FDA-Public Use
  Company Number: None

PATIENT
  Age: 32 Year
  Sex: Male
  Weight: 97.977 kg

DRUGS (5)
  1. NEURONTIN [Suspect]
  2. PRISTIQ [Concomitant]
  3. CYMBALTA [Concomitant]
  4. SEROQUEL [Suspect]
  5. SEROQUEL [Suspect]

REACTIONS (3)
  - DRUG INEFFECTIVE [None]
  - PRODUCT QUALITY ISSUE [None]
  - CONDITION AGGRAVATED [None]
